FAERS Safety Report 15088108 (Version 3)
Quarter: 2018Q3

REPORT INFORMATION
  Report Type: Report from Study
  Country: US (occurrence: US)
  Receive Date: 20180629
  Receipt Date: 20180724
  Transmission Date: 20181010
  Serious: Yes (Death, Hospitalization)
  Sender: FDA-Public Use
  Company Number: US-ROCHE-1999807

PATIENT
  Age: 51 Year
  Sex: Male
  Weight: 58 kg

DRUGS (44)
  1. ERGOCALCIFEROL. [Concomitant]
     Active Substance: ERGOCALCIFEROL
     Indication: VITAMIN D DEFICIENCY
     Dosage: DOSE: 50000 UNITS.
     Route: 048
     Dates: start: 20170530
  2. IBUPROFEN. [Concomitant]
     Active Substance: IBUPROFEN
     Indication: BACK PAIN
     Route: 048
     Dates: start: 20170821
  3. LORAZEPAM. [Concomitant]
     Active Substance: LORAZEPAM
     Indication: ANXIETY
     Dosage: DOSE: 2 MG/ML
     Route: 030
     Dates: start: 20170919, end: 20170919
  4. ONDANSETRON [Concomitant]
     Active Substance: ONDANSETRON
     Indication: NAUSEA
     Route: 042
     Dates: start: 20171127, end: 20171127
  5. PERCOCET [Concomitant]
     Active Substance: ACETAMINOPHEN\OXYCODONE HYDROCHLORIDE
     Route: 048
     Dates: start: 20170921, end: 20170922
  6. HYDROMORPHONE [Concomitant]
     Active Substance: HYDROMORPHONE
     Route: 042
     Dates: start: 20170923, end: 20170923
  7. ROLAPITANT HYDROCHLORIDE [Concomitant]
     Active Substance: ROLAPITANT
     Indication: PROPHYLAXIS
     Route: 042
     Dates: start: 20171127, end: 20171127
  8. BLINDED TRILACICLIB [Suspect]
     Active Substance: TRILACICLIB
     Dosage: START TIME OF INFUSION: 16.22 AND END TIME OF INFUSION 16.52?ONCE DAILY ON DAY 1, 2 AND 3
     Route: 042
     Dates: start: 20170923
  9. COLACE [Concomitant]
     Active Substance: DOCUSATE SODIUM
     Route: 048
     Dates: start: 20170919
  10. ALOXI [Concomitant]
     Active Substance: PALONOSETRON HYDROCHLORIDE
     Route: 042
     Dates: start: 20171011, end: 20171011
  11. ALOXI [Concomitant]
     Active Substance: PALONOSETRON HYDROCHLORIDE
     Route: 042
     Dates: start: 20171101, end: 20171101
  12. ZOLPIDEM [Concomitant]
     Active Substance: ZOLPIDEM\ZOLPIDEM TARTRATE
     Indication: DEPRESSION
     Route: 048
     Dates: start: 20170922
  13. TRAMADOL. [Concomitant]
     Active Substance: TRAMADOL
     Indication: PAIN
  14. ALOXI [Concomitant]
     Active Substance: PALONOSETRON HYDROCHLORIDE
     Indication: PROPHYLAXIS
     Route: 042
     Dates: start: 20170921, end: 20170921
  15. MIRTAZAPINE. [Concomitant]
     Active Substance: MIRTAZAPINE
     Indication: DEPRESSION
     Route: 048
     Dates: start: 20170922
  16. ETOPOSIDE PHOSPHATE [Suspect]
     Active Substance: ETOPOSIDE PHOSPHATE
     Indication: SMALL CELL LUNG CANCER
     Dosage: START TIME OF INFUSION: 14.20 AND END TIME OF INFUSION 15.20 ?DOSE ADMINISTERED 177 MG (100 MG/M2) D
     Route: 042
     Dates: start: 20170921
  17. ETOPOSIDE PHOSPHATE [Suspect]
     Active Substance: ETOPOSIDE PHOSPHATE
     Dosage: START TIME OF INFUSION: 17.30 AND END TIME OF INFUSION 18.30?ACUTE DOSE ADMINISTERED 177 MG
     Route: 042
     Dates: start: 20170922
  18. CARBOPLATIN. [Suspect]
     Active Substance: CARBOPLATIN
     Indication: SMALL CELL LUNG CANCER
     Dosage: START TIME OF INFUSION: 13.05 AND END TIME OF INFUSION 14.05?GFR VALUSE USED TO CALCULATE DOSE: 105.
     Route: 042
     Dates: start: 20170921
  19. GABAPENTIN. [Concomitant]
     Active Substance: GABAPENTIN
     Indication: BACK PAIN
     Route: 048
     Dates: start: 20170906
  20. LORAZEPAM. [Concomitant]
     Active Substance: LORAZEPAM
     Route: 042
     Dates: start: 20171101, end: 20171101
  21. ATORVASTATIN [Concomitant]
     Active Substance: ATORVASTATIN
     Indication: HYPERLIPIDAEMIA
     Route: 048
     Dates: start: 20170922
  22. HYDROMORPHONE [Concomitant]
     Active Substance: HYDROMORPHONE
     Route: 042
     Dates: start: 20170923, end: 20170923
  23. ZOFRAN [Concomitant]
     Active Substance: ONDANSETRON HYDROCHLORIDE
     Indication: PROPHYLAXIS
     Route: 048
     Dates: start: 20171101
  24. MILK OF MAGNESIA [Concomitant]
     Active Substance: MAGNESIUM HYDROXIDE
     Indication: PROPHYLAXIS
     Route: 048
     Dates: start: 20170922
  25. IBUPROFEN. [Concomitant]
     Active Substance: IBUPROFEN
     Route: 048
     Dates: start: 20170922
  26. ETOPOSIDE PHOSPHATE [Suspect]
     Active Substance: ETOPOSIDE PHOSPHATE
     Dosage: START TIME OF INFUSION: 18.23 AND END TIME OF INFUSION 19.23
     Route: 042
     Dates: start: 20170923
  27. SENNOSIDES. [Concomitant]
     Active Substance: SENNOSIDES
     Indication: CONSTIPATION
     Route: 048
     Dates: start: 20170919
  28. MIRALAX [Concomitant]
     Active Substance: POLYETHYLENE GLYCOL 3350
     Route: 048
     Dates: start: 20170919
  29. HYDROMORPHONE [Concomitant]
     Active Substance: HYDROMORPHONE
     Route: 042
     Dates: start: 20170922, end: 20170922
  30. ZOFRAN [Concomitant]
     Active Substance: ONDANSETRON HYDROCHLORIDE
     Indication: NAUSEA
  31. MILK OF MAGNESIA [Concomitant]
     Active Substance: MAGNESIUM HYDROXIDE
     Indication: CONSTIPATION
  32. LEVALBUTEROL. [Concomitant]
     Active Substance: LEVALBUTEROL
     Indication: DYSPNOEA
     Route: 065
     Dates: start: 20170922
  33. DEXAMETHASONE. [Concomitant]
     Active Substance: DEXAMETHASONE
     Indication: PROPHYLAXIS
     Route: 042
     Dates: start: 20170922, end: 20170922
  34. TRAMADOL. [Concomitant]
     Active Substance: TRAMADOL
     Indication: PROPHYLAXIS
     Route: 048
     Dates: start: 20170924
  35. BLINDED TRILACICLIB [Suspect]
     Active Substance: TRILACICLIB
     Indication: BONE MARROW FAILURE
     Dosage: START TIME OF INFUSION: 12.20 AND END TIME OF INFUSION 12.50?ONCE DAILY ON DAY 1, 2 AND 3,?MOST RECE
     Route: 042
     Dates: start: 20170921, end: 20171011
  36. LORAZEPAM. [Concomitant]
     Active Substance: LORAZEPAM
     Route: 042
     Dates: start: 20171127, end: 20171127
  37. ALLOPURINOL. [Concomitant]
     Active Substance: ALLOPURINOL
     Route: 048
     Dates: start: 20170920
  38. SIMETHICONE (DIMETHICONE) [Concomitant]
     Active Substance: DIMETHICONE
     Indication: PROPHYLAXIS
     Route: 048
     Dates: start: 20170922
  39. DEXAMETHASONE. [Concomitant]
     Active Substance: DEXAMETHASONE
     Route: 042
     Dates: start: 20170923, end: 20170923
  40. ATEZOLIZUMAB. [Suspect]
     Active Substance: ATEZOLIZUMAB
     Indication: SMALL CELL LUNG CANCER
     Dosage: START TIME OF INFUSION: 15.55 AND END TIME OF INFUSION 16.55?DAY 1 OF 21 DAYS CYCLE (CYCLICAL),?MOST
     Route: 042
     Dates: start: 20170921
  41. BLINDED TRILACICLIB [Suspect]
     Active Substance: TRILACICLIB
     Dosage: START TIME OF INFUSION: 16.22 AND END TIME OF INFUSION 16.52?ONCE DAILY ON DAY 1, 2 AND 3
     Route: 042
     Dates: start: 20170922
  42. NYSTATIN. [Concomitant]
     Active Substance: NYSTATIN
     Dosage: DOSE: 100000 UNIT/ML
     Route: 048
     Dates: start: 20170620
  43. LORAZEPAM. [Concomitant]
     Active Substance: LORAZEPAM
     Route: 042
     Dates: start: 20171103, end: 20171103
  44. FOLIC ACID. [Concomitant]
     Active Substance: FOLIC ACID
     Indication: PROPHYLAXIS
     Route: 048
     Dates: start: 20170922

REACTIONS (3)
  - Back pain [Recovered/Resolved]
  - Lung neoplasm malignant [Fatal]
  - Thrombosis [Recovered/Resolved]

NARRATIVE: CASE EVENT DATE: 20170924
